FAERS Safety Report 9065826 (Version 1)
Quarter: 2013Q1

REPORT INFORMATION
  Report Type: Report from Study
  Country: US (occurrence: US)
  Receive Date: 20130130
  Receipt Date: 20130130
  Transmission Date: 20140127
  Serious: No
  Sender: FDA-Public Use
  Company Number: US-ABBOTT-12P-163-0974990-00

PATIENT
  Age: 65 Year
  Sex: Female

DRUGS (7)
  1. HUMIRA [Suspect]
     Indication: PSORIATIC ARTHROPATHY
  2. PROPANOLOL ER [Concomitant]
     Indication: MIGRAINE
     Dosage: IN THE MORNING
  3. GENERIC PAXIL [Concomitant]
     Indication: PANIC ATTACK
     Dosage: IN THE MORNING
  4. FIORICET [Concomitant]
     Indication: MIGRAINE
     Dosage: UP TO THREE TIMES DAILY
  5. IMITREX [Concomitant]
     Indication: MIGRAINE
  6. TOPAMAX [Concomitant]
     Indication: MIGRAINE PROPHYLAXIS
     Dosage: AT NIGHT BEFORE BEDTIME
  7. GENERIC XANAX [Concomitant]
     Indication: PRODUCT USED FOR UNKNOWN INDICATION
     Dosage: AT BEDTIME

REACTIONS (6)
  - Device malfunction [Unknown]
  - Injection site pain [Recovering/Resolving]
  - Injection site bruising [Recovering/Resolving]
  - Musculoskeletal pain [Unknown]
  - Injection site pain [Unknown]
  - Injection site bruising [Unknown]
